FAERS Safety Report 24771141 (Version 1)
Quarter: 2024Q4

REPORT INFORMATION
  Report Type: Spontaneous
  Country: US (occurrence: None)
  Receive Date: 20241224
  Receipt Date: 20241224
  Transmission Date: 20250115
  Serious: Yes (Death)
  Sender: Public
  Company Number: None

PATIENT
  Age: 70 Year
  Sex: Male

DRUGS (1)
  1. CAPECITABINE [Suspect]
     Active Substance: CAPECITABINE
     Indication: Oesophageal carcinoma
     Dosage: OTHER FREQUENCY : 3 TAB BID X 14 DAYS, OFF 7 DAYS;?
     Route: 048
     Dates: start: 202412, end: 20241220

REACTIONS (2)
  - Disease progression [None]
  - Malignant neoplasm progression [None]

NARRATIVE: CASE EVENT DATE: 20241220
